FAERS Safety Report 8617477 (Version 2)
Quarter: 2013Q2

REPORT INFORMATION
  Report Type: Spontaneous
  Country: US (occurrence: US)
  Receive Date: 20120615
  Receipt Date: 20130423
  Transmission Date: 20140414
  Serious: Yes (Other)
  Sender: FDA-Public Use
  Company Number: US-ROCHE-1047347

PATIENT
  Sex: Male
  Weight: 104.42 kg

DRUGS (1)
  1. ACCUTANE [Suspect]
     Indication: FOLLICULITIS
     Route: 065
     Dates: start: 19841210, end: 19850510

REACTIONS (2)
  - Colitis ulcerative [Unknown]
  - Intestinal haemorrhage [Unknown]
